FAERS Safety Report 17994411 (Version 1)
Quarter: 2020Q3

REPORT INFORMATION
  Report Type: Spontaneous
  Country: GB (occurrence: GB)
  Receive Date: 20200708
  Receipt Date: 20200708
  Transmission Date: 20201103
  Serious: Yes (Hospitalization)
  Sender: FDA-Public Use
  Company Number: GB-ACCORD-189204

PATIENT
  Age: 77 Year
  Sex: Female

DRUGS (17)
  1. AMLODIPINE [Concomitant]
     Active Substance: AMLODIPINE BESYLATE
     Route: 048
  2. NITROLINGUAL [Concomitant]
     Active Substance: NITROGLYCERIN
     Dosage: 1?2 SPRAYS
     Route: 060
  3. CALCICHEW D3 [Concomitant]
     Active Substance: CALCIUM\CHOLECALCIFEROL
     Dosage: MORNING
     Route: 048
  4. ALLOPURINOL. [Suspect]
     Active Substance: ALLOPURINOL
     Indication: PRODUCT USED FOR UNKNOWN INDICATION
     Route: 048
     Dates: start: 20200512, end: 20200616
  5. WARFARIN [Concomitant]
     Active Substance: WARFARIN
     Dosage: AS DIRECTED
     Route: 048
  6. LACTULOSE. [Concomitant]
     Active Substance: LACTULOSE
     Dosage: TWICE DAILY/AS NECESSARY. 3.1?3.7G/5ML
     Route: 048
  7. GANFORT [Concomitant]
     Active Substance: BIMATOPROST\TIMOLOL
     Dosage: NIGHT. 0.3MG/ML / 5MG/ML
     Route: 061
  8. FEXOFENADINE [Concomitant]
     Active Substance: FEXOFENADINE HYDROCHLORIDE
     Route: 048
  9. EZETROL [Concomitant]
     Active Substance: EZETIMIBE
     Route: 048
  10. FUROSEMIDE. [Concomitant]
     Active Substance: FUROSEMIDE
     Dosage: MORNING
     Route: 048
  11. PRAVASTATIN. [Concomitant]
     Active Substance: PRAVASTATIN
     Dosage: NIGHT
     Route: 048
  12. BISOPROLOL [Concomitant]
     Active Substance: BISOPROLOL
     Dosage: MORNING
     Route: 048
  13. LISINOPRIL. [Concomitant]
     Active Substance: LISINOPRIL
     Route: 048
  14. DORZOLAMIDE [Concomitant]
     Active Substance: DORZOLAMIDE
     Route: 061
  15. LEVOTHYROXINE SODIUM. [Concomitant]
     Active Substance: LEVOTHYROXINE SODIUM
     Dosage: MORNING
     Route: 048
  16. MIRTAZAPINE. [Concomitant]
     Active Substance: MIRTAZAPINE
     Route: 048
     Dates: end: 20200622
  17. CARBOMER [Concomitant]
     Active Substance: CARBOMER
     Dosage: 1 DROP MORNING

REACTIONS (4)
  - Gingival bleeding [Unknown]
  - Thrombocytopenia [Recovered/Resolved]
  - Petechiae [Unknown]
  - Acute kidney injury [Unknown]

NARRATIVE: CASE EVENT DATE: 20200609
